FAERS Safety Report 6639740-2 (Version None)
Quarter: 2010Q1

REPORT INFORMATION
  Report Type: 
  Country: None (occurrence: None)
  Receive Date: 20100318
  Receipt Date: 20100308
  Transmission Date: 20100710
  Serious: Yes (Hospitalization, Other)
  Sender: FDA-Public Use
  Company Number: PHEH2010US02366

PATIENT
  Age: 53 Year
  Sex: Female
  Weight: 62.585 kg

DRUGS (14)
  1. EXFORGE [Suspect]
     Indication: HYPERTENSION
     Route: 048
  2. VALTURNA [Suspect]
     Indication: HYPERTENSION
  3. VALTURNA [Suspect]
     Indication: OEDEMA
  4. MINOCYCLINE HCL [Concomitant]
  5. BYSTOLIC [Concomitant]
  6. LIPITOR [Concomitant]
  7. PLAVIX [Concomitant]
  8. ASPIRIN [Concomitant]
  9. OMEPRAZOLE [Concomitant]
  10. PROTONIX [Concomitant]
  11. TYLENOL-500 [Concomitant]
  12. TRAVATAN [Concomitant]
  13. HYDROCHLOROTHIAZIDE [Concomitant]
  14. AMLODIPINE [Concomitant]

REACTIONS (23)
  - ARRHYTHMIA [None]
  - ARTHRALGIA [None]
  - ARTHRITIS [None]
  - BRADYCARDIA [None]
  - BUNDLE BRANCH BLOCK RIGHT [None]
  - CELLULITIS [None]
  - CORONARY ARTERY DISEASE [None]
  - COUGH [None]
  - DERMATITIS [None]
  - FOLLICULITIS [None]
  - HYPERKALAEMIA [None]
  - HYPERTENSION [None]
  - HYPOMAGNESAEMIA [None]
  - JUVENILE ARTHRITIS [None]
  - OEDEMA PERIPHERAL [None]
  - PALPITATIONS [None]
  - PANCYTOPENIA [None]
  - PERIPHERAL VASCULAR DISORDER [None]
  - PULSE ABNORMAL [None]
  - RENAL DISORDER [None]
  - SICK SINUS SYNDROME [None]
  - STAPHYLOCOCCAL INFECTION [None]
  - TACHYCARDIA [None]
